FAERS Safety Report 24706142 (Version 1)
Quarter: 2024Q4

REPORT INFORMATION
  Report Type: Other
  Country: IT (occurrence: IT)
  Receive Date: 20241206
  Receipt Date: 20241206
  Transmission Date: 20250115
  Serious: Yes (Death, Hospitalization, Other)
  Sender: SPECTRA MEDICAL DEVICES, LLC
  Company Number: IT-Spectra Medical Devices, LLC-2166608

PATIENT
  Age: 74 Year
  Sex: Female

DRUGS (3)
  1. SODIUM CHLORIDE [Suspect]
     Active Substance: SODIUM CHLORIDE
     Indication: Rapid correction of hyponatraemia
  2. POTASSIUM CHLORIDE [Concomitant]
     Active Substance: POTASSIUM CHLORIDE
  3. REMDESIVIR [Concomitant]
     Active Substance: REMDESIVIR

REACTIONS (4)
  - Osmotic demyelination syndrome [Fatal]
  - Product use in unapproved indication [Unknown]
  - Coma [Fatal]
  - Status epilepticus [Fatal]
